FAERS Safety Report 14896889 (Version 1)
Quarter: 2018Q2

REPORT INFORMATION
  Report Type: Spontaneous
  Country: US (occurrence: US)
  Receive Date: 20180427
  Receipt Date: 20180427
  Transmission Date: 20180711
  Serious: Yes (Other)
  Sender: FDA-Public Use
  Company Number: None

PATIENT
  Age: 49 Year
  Sex: Male

DRUGS (1)
  1. FENTANYL. [Suspect]
     Active Substance: FENTANYL
     Route: 062
     Dates: start: 20180411

REACTIONS (3)
  - Product quality issue [None]
  - Product packaging quantity issue [None]
  - Malaise [None]

NARRATIVE: CASE EVENT DATE: 20180415
